FAERS Safety Report 5699353-6 (Version None)
Quarter: 2008Q2

REPORT INFORMATION
  Report Type: 
  Country: None (occurrence: None)
  Receive Date: 20080404
  Receipt Date: 20080324
  Transmission Date: 20081010
  Serious: Yes (Other)
  Sender: FDA-Public Use
  Company Number: CHNY2008KR01372

PATIENT
  Sex: Female

DRUGS (1)
  1. NICOTINELL TTS (NCH)(NICOTIINE) TRANS-THERAPEUTIC-SYSTEM [Suspect]
     Indication: SMOKING CESSATION THERAPY
     Dosage: TRANSDERMAL
     Route: 062
     Dates: start: 20080301, end: 20080301

REACTIONS (2)
  - HEMIPLEGIA [None]
  - MIGRAINE [None]
